FAERS Safety Report 8264647-7 (Version None)
Quarter: 2012Q2

REPORT INFORMATION
  Report Type: 
  Country: None (occurrence: None)
  Receive Date: 20120406
  Receipt Date: 20120402
  Transmission Date: 20120825
  Serious: Yes (Other)
  Sender: FDA-Public Use
  Company Number: US-ABBOTT-12P-163-0903561-00

PATIENT
  Sex: Male
  Weight: 69.462 kg

DRUGS (4)
  1. TRILIPIX [Concomitant]
     Indication: HYPERLIPIDAEMIA
  2. ASPIRIN [Concomitant]
     Indication: PRODUCT USED FOR UNKNOWN INDICATION
  3. TRILIPIX [Concomitant]
     Indication: BLOOD TRIGLYCERIDES INCREASED
  4. HUMIRA [Suspect]
     Indication: PSORIASIS
     Dates: start: 20100901, end: 20120101

REACTIONS (1)
  - TRANSIENT ISCHAEMIC ATTACK [None]
